FAERS Safety Report 26103852 (Version 1)
Quarter: 2025Q4

REPORT INFORMATION
  Report Type: Report from Study
  Country: KR (occurrence: KR)
  Receive Date: 20251129
  Receipt Date: 20251129
  Transmission Date: 20260118
  Serious: Yes (Other)
  Sender: ALEXION PHARMACEUTICALS
  Company Number: KR-AstraZeneca-CH-01001923A

PATIENT
  Sex: Male

DRUGS (1)
  1. OSIMERTINIB [Suspect]
     Active Substance: OSIMERTINIB
     Dosage: UNK
     Route: 065

REACTIONS (2)
  - Cataract [Recovering/Resolving]
  - Vision blurred [Recovering/Resolving]
